FAERS Safety Report 9587201 (Version 1)
Quarter: 2013Q4

REPORT INFORMATION
  Report Type: Spontaneous
  Country: US (occurrence: US)
  Receive Date: 20131003
  Receipt Date: 20131003
  Transmission Date: 20140711
  Serious: Yes (Hospitalization)
  Sender: FDA-Public Use
  Company Number: US-GLAXOSMITHKLINE-A1043489A

PATIENT
  Age: 46 Year
  Sex: Female

DRUGS (4)
  1. ADVAIR [Suspect]
     Indication: ASTHMA
     Route: 055
  2. TUDORZA [Concomitant]
  3. ALBUTEROL + IPRATROPIUM BROMIDE [Concomitant]
  4. PROAIR HFA [Concomitant]

REACTIONS (6)
  - Hospitalisation [Unknown]
  - Emphysema [Unknown]
  - Chronic obstructive pulmonary disease [Unknown]
  - Nasopharyngitis [Unknown]
  - Malaise [Unknown]
  - Drug administration error [Unknown]
